FAERS Safety Report 12918224 (Version 1)
Quarter: 2016Q4

REPORT INFORMATION
  Report Type: Spontaneous
  Country: CH (occurrence: CH)
  Receive Date: 20161107
  Receipt Date: 20161107
  Transmission Date: 20170207
  Serious: Yes (Hospitalization, Other)
  Sender: FDA-Public Use
  Company Number: CH-009507513-1611CHE000102

PATIENT
  Age: 27 Year
  Sex: Female

DRUGS (3)
  1. ESMERON [Concomitant]
     Active Substance: ROCURONIUM BROMIDE
     Indication: ANAESTHESIA
     Dosage: UNK
     Dates: start: 20160918, end: 20160918
  2. BRIDION [Suspect]
     Active Substance: SUGAMMADEX
     Indication: NEUROMUSCULAR BLOCKADE REVERSAL
     Dosage: 200 MG, ONCE
     Route: 041
     Dates: start: 20160918, end: 20160918
  3. PROPOFOL. [Suspect]
     Active Substance: PROPOFOL
     Dosage: 20 MG, ONCE
     Route: 041
     Dates: start: 20160918, end: 20160918

REACTIONS (2)
  - Infusion site extravasation [Recovered/Resolved]
  - Pain in extremity [Recovered/Resolved]

NARRATIVE: CASE EVENT DATE: 20160918
